FAERS Safety Report 18205676 (Version 1)
Quarter: 2020Q3

REPORT INFORMATION
  Report Type: Spontaneous
  Country: GB (occurrence: GB)
  Receive Date: 20200828
  Receipt Date: 20200828
  Transmission Date: 20201103
  Serious: Yes (Life-Threatening)
  Sender: FDA-Public Use
  Company Number: GB-TEVA-2020-GB-1820264

PATIENT
  Age: 27 Year
  Sex: Male
  Weight: 73 kg

DRUGS (12)
  1. ALGINATES [Concomitant]
     Dosage: 40 ML DAILY; UNIT DOSE : 10 ML
     Dates: start: 20200528
  2. AMOXICILLIN. [Suspect]
     Active Substance: AMOXICILLIN
     Dosage: UNIT DOSE : 250 MILLIGRAM
     Route: 005
     Dates: start: 20200219
  3. COAL TAR. [Concomitant]
     Active Substance: COAL TAR
     Dosage: AS DIRECTED
     Dates: start: 20200720
  4. NICORETTE [Concomitant]
     Active Substance: NICOTINE
     Dosage: 1 PATCH
     Dates: start: 20200721, end: 20200721
  5. NICOTINE. [Concomitant]
     Active Substance: NICOTINE
     Dosage: 1 CARTRIDGE
     Dates: start: 20200721, end: 20200721
  6. OLANZAPINE. [Concomitant]
     Active Substance: OLANZAPINE
     Dosage: 3 TABLET; UNIT DOSE : 3 DOSAGE FORMS
     Dates: start: 20200219
  7. CAPASAL [Concomitant]
     Dosage: USE AS DIRECTED
     Dates: start: 20200701, end: 20200720
  8. PARACETAMOL [Concomitant]
     Active Substance: ACETAMINOPHEN
     Dosage: 2 TABLET, UNIT DOSE : 2 DOSAGE FORMS
     Dates: start: 20200517, end: 20200517
  9. OXYBUTYNIN. [Concomitant]
     Active Substance: OXYBUTYNIN CHLORIDE
     Dosage: 1 TABLET; UNIT DOSE : 1 DOSAGE FORMS
     Dates: start: 20200219, end: 20200707
  10. SODIUM ALGINATE [Concomitant]
     Active Substance: SODIUM ALGINATE
     Dosage: UNIT DOSE : 10 ML
     Dates: start: 20200529, end: 20200529
  11. MIRTAZAPINE. [Concomitant]
     Active Substance: MIRTAZAPINE
     Dosage: UNIT DOSE : 1 DOSAGE FORMS
     Dates: start: 20200219
  12. ZOPICLONE [Concomitant]
     Active Substance: ZOPICLONE
     Dosage: 1 TABLET; UNIT DOSE : 1 DOSAGE FORMS
     Dates: start: 20200720, end: 20200723

REACTIONS (1)
  - Chest discomfort [Unknown]

NARRATIVE: CASE EVENT DATE: 20200724
